FAERS Safety Report 9004821 (Version 2)
Quarter: 2013Q1

REPORT INFORMATION
  Report Type: Report from Study
  Country: DZ (occurrence: DZ)
  Receive Date: 20130109
  Receipt Date: 20130131
  Transmission Date: 20140127
  Serious: Yes (Other)
  Sender: FDA-Public Use
  Company Number: DZ-MPIJNJ-2013-00122

PATIENT
  Sex: 0

DRUGS (3)
  1. VELCADE [Suspect]
     Indication: PLASMA CELL MYELOMA
     Route: 065
  2. DEXAMETHASON                       /00016001/ [Concomitant]
     Indication: PLASMA CELL MYELOMA
  3. PREDNISONE [Concomitant]
     Indication: PLASMA CELL MYELOMA

REACTIONS (4)
  - Gastrointestinal disorder [Unknown]
  - Embolism [Unknown]
  - Neuralgia [Unknown]
  - Neuropathy peripheral [Unknown]
